FAERS Safety Report 11840936 (Version 1)
Quarter: 2015Q4

REPORT INFORMATION
  Report Type: Spontaneous
  Country: US (occurrence: US)
  Receive Date: 20151216
  Receipt Date: 20151216
  Transmission Date: 20160305
  Serious: No
  Sender: FDA-Public Use
  Company Number: US-GLAXOSMITHKLINE-US2015GSK175937

PATIENT
  Age: 64 Year

DRUGS (1)
  1. TANZEUM [Suspect]
     Active Substance: ALBIGLUTIDE
     Indication: GLUCOSE TOLERANCE IMPAIRED
     Dosage: 50 MG, WE
     Route: 042
     Dates: start: 201510

REACTIONS (8)
  - Product preparation error [Unknown]
  - Device failure [Unknown]
  - Device use error [Unknown]
  - Device difficult to use [Unknown]
  - Accidental exposure to product [Unknown]
  - Exposure via direct contact [Unknown]
  - Off label use [Unknown]
  - Device leakage [Unknown]

NARRATIVE: CASE EVENT DATE: 201510
